FAERS Safety Report 4639157-6 (Version None)
Quarter: 2005Q2

REPORT INFORMATION
  Report Type: 
  Country: None (occurrence: None)
  Receive Date: 20050418
  Receipt Date: 20050331
  Transmission Date: 20051028
  Serious: Yes (Hospitalization)
  Sender: FDA-Public Use
  Company Number: 2003IM000871

PATIENT
  Age: 72 Year
  Sex: Female
  Weight: 38 kg

DRUGS (10)
  1. INTERFERON GAMMA-1B [Suspect]
     Indication: OVARIAN CANCER
     Dosage: 100 UG, TIW, SUBCUTANEOUS
     Route: 058
     Dates: start: 20030714, end: 20030815
  2. CARBOPLATIN [Suspect]
     Indication: OVARIAN CANCER
     Dosage: 624 MG, Q3W, INTRAVENOUS
     Route: 042
     Dates: start: 20030714, end: 20030804
  3. PACLITAXEL [Suspect]
     Indication: OVARIAN CANCER
     Dosage: 247 MG, Q3W, INTRAVENOUS
     Route: 042
     Dates: start: 20030714, end: 20030804
  4. K-DUR 10 [Concomitant]
  5. MAGLUCATE [Concomitant]
  6. ZANTAC [Concomitant]
  7. FLAGYL [Concomitant]
  8. TYLENOL [Concomitant]
  9. COLACE [Concomitant]
  10. CALCIUM GLUCONATE [Concomitant]

REACTIONS (8)
  - ANAEMIA [None]
  - ASTHENIA [None]
  - DECREASED APPETITE [None]
  - FATIGUE [None]
  - FEBRILE NEUTROPENIA [None]
  - MALNUTRITION [None]
  - NAUSEA [None]
  - THROMBOCYTOPENIA [None]
